FAERS Safety Report 4351327-3 (Version None)
Quarter: 2004Q2

REPORT INFORMATION
  Report Type: 
  Country: None (occurrence: None)
  Receive Date: 20040428
  Receipt Date: 20040408
  Transmission Date: 20050107
  Serious: Yes (Other)
  Sender: FDA-Public Use
  Company Number: US_0404102221

PATIENT
  Sex: Male
  Weight: 73 kg

DRUGS (2)
  1. HUMALOG [Suspect]
     Dates: start: 20020101
  2. INSULIN GLARGINE [Concomitant]

REACTIONS (1)
  - SEPSIS [None]
